FAERS Safety Report 8199764-3 (Version None)
Quarter: 2012Q1

REPORT INFORMATION
  Report Type: 
  Country: None (occurrence: None)
  Receive Date: 20120312
  Receipt Date: 20120305
  Transmission Date: 20120608
  Serious: Yes (Other)
  Sender: FDA-Public Use
  Company Number: US-BRISTOL-MYERS SQUIBB COMPANY-15369994

PATIENT
  Age: 79 Year
  Sex: Female
  Weight: 48 kg

DRUGS (6)
  1. CARBOPLATIN [Suspect]
     Indication: NON-SMALL CELL LUNG CANCER
     Dosage: DAY 1 OF EVERY 21 DAY CYCLE.
     Dates: start: 20101006
  2. DULOXETINE HYDROCHLORIDE [Concomitant]
     Indication: DEPRESSION
     Dates: start: 20090601
  3. PACLITAXEL [Suspect]
     Indication: NON-SMALL CELL LUNG CANCER
     Dosage: DAY 1 OF EVERY 21 DAY CYCLE.
     Route: 065
     Dates: start: 20101006
  4. BISACODYL [Concomitant]
     Indication: CONSTIPATION
  5. ARFORMOTEROL TARTRATE [Concomitant]
     Indication: WHEEZING
     Dates: start: 20081224
  6. OXYCODONE HCL [Concomitant]
     Indication: PAIN
     Dates: start: 20100812

REACTIONS (5)
  - DYSPHONIA [None]
  - NAUSEA [None]
  - VOMITING [None]
  - ASTHENIA [None]
  - PAIN [None]
